FAERS Safety Report 8039017-7 (Version None)
Quarter: 2012Q1

REPORT INFORMATION
  Report Type: 
  Country: None (occurrence: None)
  Receive Date: 20120111
  Receipt Date: 20111209
  Transmission Date: 20120608
  Serious: Yes (Hospitalization)
  Sender: FDA-Public Use
  Company Number: US-AMGEN-USASP2011054926

PATIENT
  Age: 48 Year
  Sex: Female
  Weight: 91.156 kg

DRUGS (12)
  1. VESICARE [Concomitant]
     Dosage: 5 MG, QD
     Route: 048
  2. VITAMIN D [Concomitant]
     Indication: HYPOVITAMINOSIS
     Dosage: 50000 IU, QWK
     Route: 048
     Dates: start: 20110518
  3. ENBREL [Suspect]
     Indication: RHEUMATOID ARTHRITIS
     Dosage: 50 MG, QWK
     Route: 058
     Dates: start: 20110110
  4. BACLOFEN [Concomitant]
     Dosage: 10 MG, BID
     Route: 048
     Dates: start: 20110518
  5. AZULFIDINE [Concomitant]
     Dosage: 1 MG, BID
     Route: 048
     Dates: start: 20091001
  6. TREXALL [Concomitant]
     Dosage: 200 MG, QWK
     Dates: start: 20090830
  7. SULINDAC [Concomitant]
     Indication: RHEUMATOID ARTHRITIS
     Dosage: 200 MG, BID
     Route: 048
     Dates: start: 20110915
  8. SULINDAC [Concomitant]
     Indication: OSTEOARTHRITIS
  9. AZULFIDINE [Concomitant]
     Indication: RHEUMATOID ARTHRITIS
     Dosage: 500 MG, BID
     Route: 048
     Dates: start: 20090427
  10. FOLIC ACID [Concomitant]
     Dosage: 1 MG, QD
     Route: 048
     Dates: start: 20090413
  11. PLAQUENIL [Concomitant]
     Indication: RHEUMATOID ARTHRITIS
     Dosage: 200 MG, BID
     Dates: start: 20090413, end: 20111014
  12. OMEPRAZOLE [Concomitant]
     Dosage: 20 MG, QD
     Route: 048
     Dates: start: 20090803

REACTIONS (6)
  - INFECTION [None]
  - MYALGIA [None]
  - FATIGUE [None]
  - PYREXIA [None]
  - CHILLS [None]
  - BACK PAIN [None]
